FAERS Safety Report 4694723-7 (Version None)
Quarter: 2005Q2

REPORT INFORMATION
  Report Type: 
  Country: None (occurrence: None)
  Receive Date: 20050620
  Receipt Date: 20050610
  Transmission Date: 20051028
  Serious: Yes (Other)
  Sender: FDA-Public Use
  Company Number: PHBS2005CH08241

PATIENT
  Age: 60 Year
  Sex: Female

DRUGS (2)
  1. FEMARA [Concomitant]
     Dosage: 2.5 MG/D
     Route: 048
     Dates: start: 20040807, end: 20050601
  2. ZOMETA [Suspect]
     Indication: METASTASES TO BONE
     Dosage: 4 MG, QMO
     Route: 042
     Dates: start: 20040804, end: 20050307

REACTIONS (8)
  - ASEPTIC NECROSIS BONE [None]
  - BONE INFECTION [None]
  - INCISIONAL DRAINAGE [None]
  - PAIN IN JAW [None]
  - PRIMARY SEQUESTRUM [None]
  - SEQUESTRECTOMY [None]
  - SURGERY [None]
  - SWELLING FACE [None]
